FAERS Safety Report 5683367-6 (Version None)
Quarter: 2008Q1

REPORT INFORMATION
  Report Type: 
  Country: None (occurrence: None)
  Receive Date: 20080326
  Receipt Date: 20080312
  Transmission Date: 20080703
  Serious: Yes (Death)
  Sender: FDA-Public Use
  Company Number: 1022556-2008-00404

PATIENT
  Age: 0 Month
  Sex: Male

DRUGS (3)
  1. UNISOM [Suspect]
     Indication: DRUG USE FOR UNKNOWN INDICATION
     Dosage: 1/4 TABLET, 1X, ORAL
     Route: 048
     Dates: start: 20061024
  2. BENADRY [Concomitant]
  3. ZANTAC [Concomitant]

REACTIONS (2)
  - DRUG TOXICITY [None]
  - WRONG DRUG ADMINISTERED [None]
